FAERS Safety Report 16805680 (Version 2)
Quarter: 2020Q1

REPORT INFORMATION
  Report Type: Spontaneous
  Country: GR (occurrence: GR)
  Receive Date: 20190913
  Receipt Date: 20200121
  Transmission Date: 20200409
  Serious: Yes (Other)
  Sender: FDA-Public Use
  Company Number: GR-SA-2019SA253749

PATIENT
  Age: 81 Year
  Sex: Male

DRUGS (11)
  1. ALIROCUMAB [Suspect]
     Active Substance: ALIROCUMAB
     Indication: HYPERCHOLESTEROLAEMIA
     Dosage: 75 MG (PATIENT RECEIVED TOTAL 12 DOSES) INJECTION
     Route: 058
     Dates: start: 201710
  2. CLOPIDOGREL BISULFATE. [Suspect]
     Active Substance: CLOPIDOGREL BISULFATE
     Indication: THROMBOSIS
  3. ACETYLSALICYLIC ACID [Suspect]
     Active Substance: ASPIRIN
     Indication: THROMBOSIS
  4. NEBIVOLOL. [Concomitant]
     Active Substance: NEBIVOLOL
     Indication: HYPERTENSION
  5. VITAMIN E [Concomitant]
     Active Substance: .ALPHA.-TOCOPHEROL
     Indication: BLOOD CHOLESTEROL INCREASED
  6. EZETIMIBE. [Concomitant]
     Active Substance: EZETIMIBE
     Indication: BLOOD CHOLESTEROL INCREASED
  7. ALLOPURINOL. [Concomitant]
     Active Substance: ALLOPURINOL
     Indication: BLOOD URIC ACID INCREASED
  8. OLMESARTAN [Concomitant]
     Active Substance: OLMESARTAN
     Indication: HYPERTENSION
  9. COENZYME Q10 [Concomitant]
     Active Substance: UBIDECARENONE
     Indication: BLOOD CHOLESTEROL INCREASED
  10. ALIROCUMAB [Suspect]
     Active Substance: ALIROCUMAB
     Dosage: SECOND DOSE AFTER 2 DAYS (ABDOMINAL INJECTION) (PATIENT RECEIVED TOTAL 12 DOSES)
     Route: 058
  11. AMLODIPINE [Concomitant]
     Active Substance: AMLODIPINE BESYLATE
     Indication: HYPERTENSION

REACTIONS (11)
  - Hypertension [Unknown]
  - Gingival bleeding [Unknown]
  - Ischaemia [Unknown]
  - Noninfective gingivitis [Unknown]
  - Diarrhoea [Unknown]
  - Gingival disorder [Unknown]
  - Gingival discomfort [Unknown]
  - Myalgia [Unknown]
  - Nausea [Unknown]
  - Mouth haemorrhage [Unknown]
  - Mucosal discolouration [Unknown]

NARRATIVE: CASE EVENT DATE: 201710
